FAERS Safety Report 16701600 (Version 1)
Quarter: 2019Q3

REPORT INFORMATION
  Report Type: Spontaneous
  Country: GB (occurrence: GB)
  Receive Date: 20190814
  Receipt Date: 20190814
  Transmission Date: 20191004
  Serious: Yes (Other)
  Sender: FDA-Public Use
  Company Number: GB-TEVA-2019-GB-1091722

PATIENT
  Age: 59 Year
  Sex: Female
  Weight: 80 kg

DRUGS (14)
  1. PARACETAMOL COATED 90% [Concomitant]
  2. MOVICOL [Concomitant]
     Active Substance: POLYETHYLENE GLYCOL 3350\POTASSIUM CHLORIDE\SODIUM BICARBONATE\SODIUM CHLORIDE
  3. DULOXETINE. [Concomitant]
     Active Substance: DULOXETINE
  4. VITAMIN D [Concomitant]
     Active Substance: VITAMIN D NOS
  5. TIBOLONE [Concomitant]
     Active Substance: TIBOLONE
  6. MST CONTINUS [Concomitant]
     Active Substance: MORPHINE SULFATE
  7. PROZAC [Concomitant]
     Active Substance: FLUOXETINE HYDROCHLORIDE
  8. OMEPRAZOLE. [Concomitant]
     Active Substance: OMEPRAZOLE
  9. PREGABALIN MYLAN [Concomitant]
     Active Substance: PREGABALIN
  10. TRIMETHOPRIM. [Suspect]
     Active Substance: TRIMETHOPRIM
     Indication: URINARY TRACT INFECTION
     Route: 048
     Dates: start: 20190702, end: 20190704
  11. MIRABEGRON [Concomitant]
     Active Substance: MIRABEGRON
  12. FUROSEMIDE SODIUM [Concomitant]
     Active Substance: FUROSEMIDE SODIUM
  13. AMITRIPTYLINE [Concomitant]
     Active Substance: AMITRIPTYLINE
  14. RAMIPRIL. [Concomitant]
     Active Substance: RAMIPRIL

REACTIONS (3)
  - Tremor [Recovered/Resolved]
  - Vomiting [Recovered/Resolved]
  - Urticaria [Recovered/Resolved]

NARRATIVE: CASE EVENT DATE: 20190704
